FAERS Safety Report 12064704 (Version 1)
Quarter: 2016Q1

REPORT INFORMATION
  Report Type: Spontaneous
  Country: US (occurrence: US)
  Receive Date: 20160210
  Receipt Date: 20160210
  Transmission Date: 20160526
  Serious: No
  Sender: FDA-Public Use
  Company Number: US-ALLERGAN-1516069US

PATIENT
  Sex: Female

DRUGS (1)
  1. BOTOX [Suspect]
     Active Substance: ONABOTULINUMTOXINA
     Indication: BRUXISM
     Dosage: 16 UNITS, SINGLE
     Route: 030
     Dates: start: 201509, end: 201509

REACTIONS (4)
  - Cellulitis [Recovered/Resolved]
  - Off label use [Unknown]
  - Odynophagia [Unknown]
  - Rash [Unknown]

NARRATIVE: CASE EVENT DATE: 201509
